FAERS Safety Report 5047656-0 (Version None)
Quarter: 2006Q3

REPORT INFORMATION
  Report Type: 
  Country: None (occurrence: None)
  Receive Date: 20060711
  Receipt Date: 20060424
  Transmission Date: 20061208
  Serious: Yes (Hospitalization)
  Sender: FDA-Public Use
  Company Number: FR-AVENTIS-200614397GDDC

PATIENT
  Age: 40 Year
  Sex: Female

DRUGS (6)
  1. TOPREC [Suspect]
     Indication: PYREXIA
     Dosage: DOSE: 4 DF DAILY
     Route: 048
     Dates: start: 20060224, end: 20060225
  2. NASACORT [Suspect]
     Dates: start: 20060224, end: 20060225
  3. BIRODOGYL [Suspect]
     Indication: ALVEOLITIS
     Dosage: DOSE: 6 DF DAILY
     Dates: start: 20060224, end: 20060225
  4. EFFERALGAN CODEINE [Suspect]
     Indication: PYREXIA
     Dosage: DOSE: 6 DF DAILY
     Dates: start: 20060224, end: 20060225
  5. VOGALENE [Suspect]
     Indication: NAUSEA
     Dates: start: 20060224, end: 20060225
  6. VOGALENE [Suspect]
     Indication: VOMITING
     Dates: start: 20060224, end: 20060225

REACTIONS (3)
  - ABDOMINAL PAIN [None]
  - COLITIS [None]
  - DIARRHOEA HAEMORRHAGIC [None]
